FAERS Safety Report 14745807 (Version 1)
Quarter: 2018Q2

REPORT INFORMATION
  Report Type: Spontaneous
  Country: ES (occurrence: ES)
  Receive Date: 20180411
  Receipt Date: 20180411
  Transmission Date: 20180711
  Serious: Yes (Death, Other)
  Sender: FDA-Public Use
  Company Number: PHHY2017ES202086

PATIENT
  Age: 64 Year
  Sex: Female

DRUGS (6)
  1. NEXAVAR [Suspect]
     Active Substance: SORAFENIB
     Dosage: 400 MG, QD
     Route: 065
     Dates: start: 201302, end: 2013
  2. PAZOPANIB [Suspect]
     Active Substance: PAZOPANIB
     Indication: PRODUCT USED FOR UNKNOWN INDICATION
     Dosage: DOSE REDUCED
     Route: 065
  3. LENALIDOMIDE [Suspect]
     Active Substance: LENALIDOMIDE
     Indication: PRODUCT USED FOR UNKNOWN INDICATION
     Dosage: UNK
     Route: 065
  4. NEXAVAR [Suspect]
     Active Substance: SORAFENIB
     Indication: FOLLICULAR THYROID CANCER
     Dosage: 800 MG, QD
     Route: 065
     Dates: start: 2009, end: 2011
  5. NEXAVAR [Suspect]
     Active Substance: SORAFENIB
     Dosage: 400 MG, QD
     Route: 048
     Dates: start: 201005, end: 2013
  6. VANDETANIB. [Suspect]
     Active Substance: VANDETANIB
     Indication: PRODUCT USED FOR UNKNOWN INDICATION
     Dosage: UNK
     Route: 065

REACTIONS (12)
  - General physical health deterioration [Unknown]
  - Off label use [Unknown]
  - Musculoskeletal pain [Unknown]
  - Dyspnoea [Unknown]
  - Respiratory failure [Fatal]
  - Diarrhoea [Recovering/Resolving]
  - Lung disorder [Unknown]
  - Neoplasm progression [Fatal]
  - Lymphadenopathy mediastinal [Unknown]
  - Therapeutic response decreased [Unknown]
  - Asthenia [Unknown]
  - Rash [Unknown]

NARRATIVE: CASE EVENT DATE: 2009
